FAERS Safety Report 6604417-6 (Version None)
Quarter: 2010Q1

REPORT INFORMATION
  Report Type: 
  Country: None (occurrence: None)
  Receive Date: 20100226
  Receipt Date: 20090928
  Transmission Date: 20100710
  Serious: No
  Sender: FDA-Public Use
  Company Number: A0809333A

PATIENT
  Age: 37 Year
  Sex: Female

DRUGS (5)
  1. LAMICTAL CD [Suspect]
     Indication: BIPOLAR DISORDER
     Dosage: 25MG PER DAY
     Route: 048
     Dates: start: 20030101
  2. LITHIUM [Concomitant]
  3. XANAX [Concomitant]
  4. PERPHENAZINE [Concomitant]
  5. KLONOPIN [Concomitant]

REACTIONS (1)
  - ALOPECIA [None]
